FAERS Safety Report 13868908 (Version 1)
Quarter: 2017Q3

REPORT INFORMATION
  Report Type: Spontaneous
  Country: US (occurrence: US)
  Receive Date: 20170815
  Receipt Date: 20170815
  Transmission Date: 20171127
  Serious: No
  Sender: FDA-Public Use
  Company Number: GXBR2017US001014

PATIENT
  Sex: Female

DRUGS (1)
  1. AMPICILLIN FOR INJECTION, USP [Suspect]
     Active Substance: AMPICILLIN
     Indication: LARYNGITIS BACTERIAL
     Dosage: UNK
     Route: 042

REACTIONS (1)
  - Incorrect dose administered [Unknown]
